FAERS Safety Report 11932701 (Version 1)
Quarter: 2016Q1

REPORT INFORMATION
  Report Type: Spontaneous
  Country: US (occurrence: US)
  Receive Date: 20160120
  Receipt Date: 20160120
  Transmission Date: 20160526
  Serious: Yes (Other)
  Sender: FDA-Public Use
  Company Number: US-DSJP-DSU-2016-102206

PATIENT

DRUGS (1)
  1. AZOR [Suspect]
     Active Substance: AMLODIPINE BESYLATE\OLMESARTAN MEDOXOMIL
     Indication: PRODUCT USED FOR UNKNOWN INDICATION
     Dosage: 5/20MG, UNK

REACTIONS (6)
  - Hypertension [Unknown]
  - Hypercholesterolaemia [Unknown]
  - Colon cancer [Unknown]
  - Diabetes mellitus [Unknown]
  - Prostatic disorder [Unknown]
  - Cardiac failure [Unknown]
